FAERS Safety Report 7538842-6 (Version None)
Quarter: 2011Q2

REPORT INFORMATION
  Report Type: 
  Country: None (occurrence: None)
  Receive Date: 20110610
  Receipt Date: 20110531
  Transmission Date: 20111010
  Serious: Yes (Other)
  Sender: FDA-Public Use
  Company Number: US-BAYER-2011-029548

PATIENT
  Age: 39 Year
  Sex: Female

DRUGS (1)
  1. MIRENA [Suspect]
     Indication: CONTRACEPTION
     Dosage: 20 MCG/24HR, CONT
     Route: 015
     Dates: start: 20110310, end: 20110323

REACTIONS (7)
  - SUICIDAL IDEATION [None]
  - PROCEDURAL PAIN [None]
  - BACK PAIN [None]
  - ABDOMINAL PAIN [None]
  - DEPRESSION [None]
  - PAIN [None]
  - GENITAL HAEMORRHAGE [None]
